FAERS Safety Report 13633003 (Version 1)
Quarter: 2017Q2

REPORT INFORMATION
  Report Type: Spontaneous
  Country: US (occurrence: US)
  Receive Date: 20170609
  Receipt Date: 20170609
  Transmission Date: 20170830
  Serious: Yes (Death, Hospitalization, Other)
  Sender: FDA-Public Use
  Company Number: US-ROCHE-1944561

PATIENT
  Age: 84 Year
  Sex: Male

DRUGS (3)
  1. ESBRIET [Suspect]
     Active Substance: PIRFENIDONE
     Indication: IDIOPATHIC PULMONARY FIBROSIS
  2. PREDNISONE. [Concomitant]
     Active Substance: PREDNISONE
  3. ESBRIET [Suspect]
     Active Substance: PIRFENIDONE
     Indication: INTERSTITIAL LUNG DISEASE
     Route: 065

REACTIONS (13)
  - Acute kidney injury [Unknown]
  - Hypertension [Unknown]
  - Dyspnoea [Unknown]
  - Death [Fatal]
  - Urine output decreased [Unknown]
  - Diarrhoea [Unknown]
  - Hypophagia [Unknown]
  - Abasia [Unknown]
  - Pneumonia fungal [Unknown]
  - Goodpasture^s syndrome [Unknown]
  - Decreased appetite [Unknown]
  - Pulmonary vasculitis [Unknown]
  - Renal vasculitis [Unknown]

NARRATIVE: CASE EVENT DATE: 20170604
